FAERS Safety Report 6582344-0 (Version None)
Quarter: 2010Q1

REPORT INFORMATION
  Report Type: 
  Country: None (occurrence: None)
  Receive Date: 20100216
  Receipt Date: 20100202
  Transmission Date: 20100710
  Serious: Yes (Death)
  Sender: FDA-Public Use
  Company Number: SE-CELGENEUS-150-20484-10020668

PATIENT
  Age: 63 Year
  Sex: Female

DRUGS (1)
  1. INNOHEP [Suspect]
     Indication: PULMONARY EMBOLISM
     Route: 065

REACTIONS (2)
  - HAEMORRHAGE [None]
  - HEPARIN-INDUCED THROMBOCYTOPENIA [None]
